FAERS Safety Report 19723197 (Version 1)
Quarter: 2021Q3

REPORT INFORMATION
  Report Type: Spontaneous
  Country: US (occurrence: US)
  Receive Date: 20210820
  Receipt Date: 20210820
  Transmission Date: 20211014
  Serious: Yes (Hospitalization)
  Sender: FDA-Public Use
  Company Number: US-SA-2021SA274280

PATIENT
  Age: 58 Year
  Sex: Female

DRUGS (1)
  1. DUPIXENT [Suspect]
     Active Substance: DUPILUMAB
     Indication: PSORIASIS
     Dosage: 300 MG, QOW
     Route: 058
     Dates: start: 20210224

REACTIONS (3)
  - Product use in unapproved indication [Unknown]
  - Transfusion [Not Recovered/Not Resolved]
  - Haemorrhoid operation [Not Recovered/Not Resolved]

NARRATIVE: CASE EVENT DATE: 20210224
